FAERS Safety Report 10181933 (Version 2)
Quarter: 2014Q2

REPORT INFORMATION
  Report Type: Spontaneous
  Country: US (occurrence: US)
  Receive Date: 20140519
  Receipt Date: 20140519
  Transmission Date: 20141212
  Serious: No
  Sender: FDA-Public Use
  Company Number: US-ASTRAZENECA-2000AU00984

PATIENT
  Age: 60 Year
  Sex: Male
  Weight: 133.8 kg

DRUGS (8)
  1. ATACAND [Suspect]
     Indication: HYPERTENSION
     Route: 048
     Dates: start: 199911
  2. CRESTOR [Suspect]
     Indication: BLOOD CHOLESTEROL
     Route: 048
     Dates: start: 20121003, end: 20130919
  3. LISINOPRIL [Suspect]
     Route: 048
  4. VERAPAMIL [Concomitant]
     Indication: BLOOD PRESSURE
  5. NIFEDICAL XL [Concomitant]
     Indication: BLOOD PRESSURE ABNORMAL
  6. CLOPIDOGREL [Concomitant]
     Indication: BLOOD PRESSURE ABNORMAL
  7. GLYBERIDE [Concomitant]
     Indication: DIABETES MELLITUS
  8. METFORMIN [Concomitant]
     Indication: DIABETES MELLITUS

REACTIONS (6)
  - Blood glucose increased [Unknown]
  - Musculoskeletal chest pain [Unknown]
  - Myalgia [Unknown]
  - Pyrexia [Not Recovered/Not Resolved]
  - Muscle spasms [Not Recovered/Not Resolved]
  - Musculoskeletal pain [Recovered/Resolved with Sequelae]
